FAERS Safety Report 21833349 (Version 2)
Quarter: 2023Q1

REPORT INFORMATION
  Report Type: Spontaneous
  Country: IT (occurrence: IT)
  Receive Date: 20230107
  Receipt Date: 20230123
  Transmission Date: 20230418
  Serious: Yes (Hospitalization, Other)
  Sender: FDA-Public Use
  Company Number: IT-MINISAL02-901618

PATIENT
  Age: 40 Year
  Sex: Male

DRUGS (8)
  1. QUETIAPINE [Suspect]
     Active Substance: QUETIAPINE
     Indication: Product used for unknown indication
     Dosage: 230 DOSAGE FORM(230 COMPRESSE DI QUETIAPINA 150 MG + 50 BLISTER DI CITALOPRAM.)
     Route: 048
     Dates: start: 20220823
  2. CITALOPRAM HYDROBROMIDE [Suspect]
     Active Substance: CITALOPRAM HYDROBROMIDE
     Indication: Product used for unknown indication
     Dosage: 230 COMPRESSE DI QUETIAPINA 150 MG + 50 BLISTER DI CITALOPRAM.
     Route: 048
     Dates: start: 20220823
  3. BISOPROLOL [Concomitant]
     Active Substance: BISOPROLOL
     Indication: Product used for unknown indication
     Dosage: UNK
     Route: 048
  4. FLURAZEPAM MONOHYDROCHLORIDE [Concomitant]
     Active Substance: FLURAZEPAM MONOHYDROCHLORIDE
     Indication: Product used for unknown indication
     Dosage: UNK
     Route: 048
  5. DULOXETINE [Concomitant]
     Active Substance: DULOXETINE
     Indication: Product used for unknown indication
     Dosage: UNK
     Route: 065
  6. LYRICA [Concomitant]
     Active Substance: PREGABALIN
     Indication: Product used for unknown indication
     Dosage: UNK
     Route: 048
  7. Tavor [Concomitant]
     Indication: Product used for unknown indication
     Dosage: UNK
     Route: 048
  8. LITHIUM SULFATE [Concomitant]
     Active Substance: LITHIUM SULFATE
     Indication: Product used for unknown indication
     Dosage: UNK
     Route: 065

REACTIONS (3)
  - Coma [Recovered/Resolved]
  - Intentional product misuse [Recovered/Resolved]
  - Bezoar [Recovered/Resolved]

NARRATIVE: CASE EVENT DATE: 20220824
